FAERS Safety Report 13450494 (Version 1)
Quarter: 2017Q2

REPORT INFORMATION
  Report Type: Spontaneous
  Country: US (occurrence: US)
  Receive Date: 20170417
  Receipt Date: 20170417
  Transmission Date: 20170830
  Serious: No
  Sender: FDA-Public Use
  Company Number: None

PATIENT
  Age: 74 Year
  Sex: Female

DRUGS (1)
  1. REPATHA [Suspect]
     Active Substance: EVOLOCUMAB
     Indication: HYPERLIPIDAEMIA

REACTIONS (16)
  - Constipation [None]
  - Injection site reaction [None]
  - Influenza like illness [None]
  - Nausea [None]
  - Blood pressure increased [None]
  - Haemorrhage [None]
  - Pain [None]
  - Asthenia [None]
  - Dizziness [None]
  - Hyperhidrosis [None]
  - Fatigue [None]
  - Chest discomfort [None]
  - Headache [None]
  - Back pain [None]
  - Pain in jaw [None]
  - Depression [None]

NARRATIVE: CASE EVENT DATE: 20170217
